FAERS Safety Report 5619134-9 (Version None)
Quarter: 2008Q1

REPORT INFORMATION
  Report Type: 
  Country: None (occurrence: None)
  Receive Date: 20080205
  Receipt Date: 20080122
  Transmission Date: 20080703
  Serious: Yes (Other)
  Sender: FDA-Public Use
  Company Number: 2008S1001153

PATIENT
  Age: 74 Year
  Sex: Female

DRUGS (3)
  1. AMLODIPINE BESYLATE [Suspect]
     Indication: HYPERTENSION
     Dosage: 2.5 MG;DAILY;ORAL
     Route: 048
     Dates: start: 20080101
  2. AZITHROMYCIN [Suspect]
     Indication: URINARY TRACT INFECTION
     Dosage: X1;ORAL
     Route: 048
     Dates: start: 20080116, end: 20080116
  3. NORVASC /00972402/ [Concomitant]

REACTIONS (2)
  - BURNING SENSATION [None]
  - CHEST PAIN [None]
